FAERS Safety Report 8273833-1 (Version None)
Quarter: 2012Q2

REPORT INFORMATION
  Report Type: 
  Country: None (occurrence: None)
  Receive Date: 20120411
  Receipt Date: 20120405
  Transmission Date: 20120825
  Serious: Yes (Hospitalization)
  Sender: FDA-Public Use
  Company Number: JP-EISAI INC-E7389-02278-CLI-JP

PATIENT
  Sex: Male
  Weight: 59 kg

DRUGS (1)
  1. EPIRUBICIN HYDROCHLORIDE [Suspect]
     Indication: SARCOMA
     Dosage: UNKNOWN
     Route: 041
     Dates: start: 20120112

REACTIONS (1)
  - ILEUS [None]
